FAERS Safety Report 9799390 (Version 1)
Quarter: 2013Q4

REPORT INFORMATION
  Report Type: Spontaneous
  Country: FR (occurrence: None)
  Receive Date: 20131231
  Receipt Date: 20131231
  Transmission Date: 20140711
  Serious: Yes (Hospitalization)
  Sender: FDA-Public Use
  Company Number: 2013P1022349

PATIENT
  Age: 76 Year
  Sex: Female

DRUGS (8)
  1. PLAQUENIL [Suspect]
     Route: 048
     Dates: start: 20131019, end: 20131117
  2. EZETROL [Suspect]
     Route: 048
     Dates: end: 20131125
  3. COTAREG [Concomitant]
  4. CIPRALAN [Concomitant]
  5. KARDEGIC [Concomitant]
  6. LEVVOTHYROX [Concomitant]
  7. CORTANCYL [Concomitant]
  8. TANGANIL [Concomitant]

REACTIONS (3)
  - Renal failure [None]
  - Leukocyturia [None]
  - Drug reaction with eosinophilia and systemic symptoms [None]
